FAERS Safety Report 7209259-9 (Version None)
Quarter: 2011Q1

REPORT INFORMATION
  Report Type: 
  Country: None (occurrence: None)
  Receive Date: 20110104
  Receipt Date: 20101227
  Transmission Date: 20110831
  Serious: Yes (Other)
  Sender: FDA-Public Use
  Company Number: A0902228A

PATIENT
  Age: 50 Year
  Sex: Male

DRUGS (2)
  1. RITUXIMAB [Concomitant]
  2. PROMACTA [Suspect]
     Indication: IDIOPATHIC THROMBOCYTOPENIC PURPURA
     Route: 048
     Dates: end: 20100726

REACTIONS (3)
  - LIVER DISORDER [None]
  - THROMBOSIS [None]
  - MENTAL DISORDER [None]
